FAERS Safety Report 8500774-4 (Version None)
Quarter: 2012Q2

REPORT INFORMATION
  Report Type: 
  Country: None (occurrence: None)
  Receive Date: 20120405
  Receipt Date: 20091109
  Transmission Date: 20120825
  Serious: Yes (Other)
  Sender: FDA-Public Use
  Company Number: PHEH2009US09528

PATIENT
  Age: 60 Year
  Sex: Female

DRUGS (2)
  1. RECLAST [Suspect]
     Indication: OSTEOPOROSIS
     Dosage: 5 MG, ONCE/SINGLE, INFUSION,
     Dates: start: 20080616, end: 20080616
  2. RECLAST [Suspect]
     Indication: OSTEOPOROSIS
     Dosage: 5 MG, ONCE/SINGLE, INFUSION,
     Dates: start: 20090616, end: 20090616

REACTIONS (13)
  - PHARYNGEAL OEDEMA [None]
  - GAIT DISTURBANCE [None]
  - PRURITUS [None]
  - RASH [None]
  - MUSCULOSKELETAL STIFFNESS [None]
  - ARTHRALGIA [None]
  - INFLUENZA [None]
  - MYALGIA [None]
  - DERMATITIS CONTACT [None]
  - SWELLING FACE [None]
  - PAIN IN EXTREMITY [None]
  - URTICARIA [None]
  - LIGAMENT SPRAIN [None]
